FAERS Safety Report 8352179-7 (Version None)
Quarter: 2012Q2

REPORT INFORMATION
  Report Type: 
  Country: None (occurrence: None)
  Receive Date: 20120511
  Receipt Date: 20120501
  Transmission Date: 20120825
  Serious: Yes (Hospitalization)
  Sender: FDA-Public Use
  Company Number: US-JNJFOC-20120501548

PATIENT
  Sex: Female
  Weight: 32.21 kg

DRUGS (1)
  1. RISPERIDONE [Suspect]
     Indication: ATTENTION DEFICIT/HYPERACTIVITY DISORDER
     Route: 048
     Dates: start: 20120301, end: 20120416

REACTIONS (5)
  - ABNORMAL LOSS OF WEIGHT [None]
  - OFF LABEL USE [None]
  - BLOOD KETONE BODY INCREASED [None]
  - DIABETES MELLITUS [None]
  - VOMITING [None]
